FAERS Safety Report 8406914-X (Version None)
Quarter: 2012Q2

REPORT INFORMATION
  Report Type: 
  Country: None (occurrence: None)
  Receive Date: 20120604
  Receipt Date: 20120521
  Transmission Date: 20120825
  Serious: Yes (Hospitalization, Other)
  Sender: FDA-Public Use
  Company Number: US-BAYER-2012-053862

PATIENT
  Age: 56 Year
  Sex: Female
  Weight: 48.2 kg

DRUGS (17)
  1. IBUPROFEN [Suspect]
     Indication: BACK PAIN
     Dosage: 400 MG, PRN
     Dates: start: 19800901
  2. IODINE [Concomitant]
     Dosage: UNK
     Dates: start: 20110301
  3. BIOTIN [Concomitant]
     Dosage: UNK
     Dates: start: 20090101
  4. NAPROXEN SODIUM [Suspect]
     Indication: PSORIATIC ARTHROPATHY
     Dosage: 500 MG, PRN
     Route: 048
     Dates: start: 20041001
  5. UNCODEABLE ^INVESTIGATIONAL DRUG^ [Suspect]
     Indication: PSORIASIS
     Dosage: UNK UNK, PRN
     Dates: start: 20110811
  6. VITAMIN D [Concomitant]
     Dosage: UNK
     Dates: start: 20090101
  7. KELP [Concomitant]
     Dosage: UNK
     Dates: start: 20110301
  8. VITAMIN C [Concomitant]
     Dosage: UNK
     Dates: start: 19850601
  9. FOLIC ACID [Concomitant]
     Dosage: UNK
     Dates: start: 19850601
  10. DIGESTIVE ENZYMES [Concomitant]
     Dosage: UNK
     Dates: start: 20110301
  11. PROBIOTICS [Concomitant]
     Dosage: UNK
     Dates: start: 20081101
  12. COQ10 [Concomitant]
     Dosage: UNK
     Dates: start: 20090401
  13. VITAMIN B-12 [Concomitant]
     Dosage: UNK
     Dates: start: 20070201
  14. FISH OIL [Concomitant]
  15. VITAMIN B6 [Concomitant]
     Dosage: UNK
     Dates: start: 19850601
  16. NIASPAN [Concomitant]
     Dosage: UNK
     Dates: start: 20111013
  17. RED YEAST RICE [Concomitant]
     Dosage: UNK
     Dates: start: 20100601

REACTIONS (7)
  - GASTRITIS [None]
  - DUODENITIS [None]
  - ANAEMIA [None]
  - OESOPHAGEAL ULCER HAEMORRHAGE [None]
  - HIATUS HERNIA [None]
  - DIARRHOEA HAEMORRHAGIC [None]
  - OESOPHAGEAL STENOSIS [None]
